FAERS Safety Report 5153771-3 (Version None)
Quarter: 2006Q4

REPORT INFORMATION
  Report Type: 
  Country: None (occurrence: None)
  Receive Date: 20061120
  Receipt Date: 20061114
  Transmission Date: 20070319
  Serious: Yes (Other)
  Sender: FDA-Public Use
  Company Number: US-BAYER-200614697BCC

PATIENT
  Age: 46 Year
  Sex: Male
  Weight: 102 kg

DRUGS (1)
  1. ORIGINAL ALKA SELTZER TABLETS [Suspect]
     Indication: DYSPEPSIA
     Route: 048

REACTIONS (4)
  - BLOOD URINE PRESENT [None]
  - CALCULUS URETERIC [None]
  - FLANK PAIN [None]
  - NEPHROLITHIASIS [None]
